FAERS Safety Report 21244318 (Version 1)
Quarter: 2022Q3

REPORT INFORMATION
  Report Type: Spontaneous
  Country: US (occurrence: None)
  Receive Date: 20220822
  Receipt Date: 20220822
  Transmission Date: 20221026
  Serious: No
  Sender: FDA-Public Use
  Company Number: None

PATIENT
  Sex: Male

DRUGS (1)
  1. COSENTYX [Suspect]
     Active Substance: SECUKINUMAB
     Indication: Psoriasis
     Dosage: 150 MG WEEKLY FOR 5 WEEKS SUBCUTANEOUSLY?
     Route: 058
     Dates: start: 20220721

REACTIONS (2)
  - Therapy non-responder [None]
  - Skin lesion [None]
